FAERS Safety Report 20220172 (Version 1)
Quarter: 2021Q4

REPORT INFORMATION
  Report Type: Spontaneous
  Country: EG (occurrence: EG)
  Receive Date: 20211223
  Receipt Date: 20211223
  Transmission Date: 20220303
  Serious: Yes (Death, Other)
  Sender: FDA-Public Use
  Company Number: EG-AMGEN-EGYSP2021201398

PATIENT

DRUGS (2)
  1. ARANESP [Suspect]
     Active Substance: DARBEPOETIN ALFA
     Indication: Anaemia
     Dosage: UNK UNK, QWK
     Route: 058
  2. IRON [Concomitant]
     Active Substance: IRON

REACTIONS (12)
  - Cerebrovascular accident [Unknown]
  - Myocardial infarction [Unknown]
  - Vascular access site thrombosis [Unknown]
  - Death [Fatal]
  - Haemoglobin increased [Unknown]
  - Procedural hypotension [Unknown]
  - Vomiting [Unknown]
  - Diarrhoea [Unknown]
  - Cough [Unknown]
  - Oedema [Unknown]
  - Injection site pain [Unknown]
  - Hypertension [Unknown]
